FAERS Safety Report 8010609-4 (Version None)
Quarter: 2011Q4

REPORT INFORMATION
  Report Type: 
  Country: None (occurrence: None)
  Receive Date: 20111222
  Receipt Date: 20111206
  Transmission Date: 20120403
  Serious: No
  Sender: FDA-Public Use
  Company Number: THQ2011A08137

PATIENT
  Age: 84 Year
  Sex: Male
  Weight: 63.49 kg

DRUGS (4)
  1. ASPIRIN [Concomitant]
  2. VITAMINS /90003601/ [Concomitant]
  3. PREVACID [Suspect]
     Indication: PRODUCT USED FOR UNKNOWN INDICATION
     Dosage: PER ORAL
     Route: 048
     Dates: start: 19990101
  4. LIPITOR [Suspect]
     Indication: BLOOD CHOLESTEROL INCREASED
     Dosage: 40 MG, 1 IN 1 D,PER ORAL ; 80 MG, 1 IN 1 D, PER ORAL ; 1 D, PER ORAL
     Route: 048
     Dates: start: 19990101

REACTIONS (4)
  - GALLBLADDER OPERATION [None]
  - TONGUE DISCOLOURATION [None]
  - BLOOD CHOLESTEROL INCREASED [None]
  - DYSGEUSIA [None]
